FAERS Safety Report 4277951-4 (Version None)
Quarter: 2004Q1

REPORT INFORMATION
  Report Type: 
  Country: None (occurrence: None)
  Receive Date: 20040121
  Receipt Date: 20040114
  Transmission Date: 20041129
  Serious: Yes (Hospitalization)
  Sender: FDA-Public Use
  Company Number: TCI2003A03067

PATIENT
  Age: 57 Year
  Sex: Male

DRUGS (5)
  1. PIOGLITAZONE HCL [Suspect]
     Indication: DIABETES MELLITUS NON-INSULIN-DEPENDENT
     Dosage: 15 MG (15 MG, 1 IN 1 D) PER ORAL
     Route: 048
     Dates: start: 20021119, end: 20030812
  2. PIOGLITAZONE HCL [Suspect]
     Indication: DIABETES MELLITUS NON-INSULIN-DEPENDENT
     Dosage: 15 MG (15 MG, 1 IN 1 D) PER ORAL
     Route: 048
     Dates: start: 20030822
  3. GLIMEPIRIDE [Concomitant]
  4. LISINOPRIL [Concomitant]
  5. AMLODIPINE BESYLATE [Concomitant]

REACTIONS (7)
  - ASTHENIA [None]
  - HEADACHE [None]
  - MALAISE [None]
  - NASAL CONGESTION [None]
  - PHARYNGOLARYNGEAL PAIN [None]
  - PO2 DECREASED [None]
  - TONGUE PARALYSIS [None]
